FAERS Safety Report 11180818 (Version 1)
Quarter: 2015Q2

REPORT INFORMATION
  Report Type: Spontaneous
  Country: IT (occurrence: IT)
  Receive Date: 20150611
  Receipt Date: 20150611
  Transmission Date: 20150821
  Serious: Yes (Disabling)
  Sender: FDA-Public Use
  Company Number: IT-ACTAVIS-2015-11281

PATIENT
  Age: 66 Year
  Sex: Female

DRUGS (1)
  1. ZOLEDRONIC ACID (UNKNOWN) [Suspect]
     Active Substance: ZOLEDRONIC ACID
     Indication: METASTASES TO BONE
     Dosage: 4 MG MONTHLY
     Route: 042
     Dates: start: 20100501, end: 20110801

REACTIONS (3)
  - Osteonecrosis of jaw [Unknown]
  - Swelling face [Unknown]
  - Purulent discharge [Unknown]

NARRATIVE: CASE EVENT DATE: 20121015
